FAERS Safety Report 19836750 (Version 1)
Quarter: 2021Q3

REPORT INFORMATION
  Report Type: Report from Study
  Country: IN (occurrence: IN)
  Receive Date: 20210914
  Receipt Date: 20210914
  Transmission Date: 20211014
  Serious: Yes (Hospitalization)
  Sender: FDA-Public Use
  Company Number: NVSC2021IN006258

PATIENT
  Age: 45 Year
  Sex: Male

DRUGS (1)
  1. VYMADA [Suspect]
     Active Substance: SACUBITRIL\VALSARTAN
     Indication: CARDIAC FAILURE CHRONIC
     Dosage: 200 MG, BID (HALF BD)
     Route: 048
     Dates: start: 20201128

REACTIONS (4)
  - Wrong technique in product usage process [Unknown]
  - Lower limb fracture [Unknown]
  - Product prescribing error [Unknown]
  - Accident [Unknown]

NARRATIVE: CASE EVENT DATE: 20201128
